FAERS Safety Report 14964247 (Version 1)
Quarter: 2018Q2

REPORT INFORMATION
  Report Type: Spontaneous
  Country: US (occurrence: US)
  Receive Date: 20180601
  Receipt Date: 20180601
  Transmission Date: 20180711
  Serious: Yes (Hospitalization, Other)
  Sender: FDA-Public Use
  Company Number: US-WEST-WARD PHARMACEUTICALS CORP.-US-H14001-18-04508

PATIENT
  Age: 24 Year
  Sex: Female

DRUGS (4)
  1. MEDROXYPROGESTERONE [Concomitant]
     Active Substance: MEDROXYPROGESTERONE
     Indication: POLYCYSTIC OVARIES
     Route: 065
  2. IRON SUPLEMENTATION [Concomitant]
     Indication: POLYCYSTIC OVARIES
     Route: 065
  3. RISPERIDONE. [Suspect]
     Active Substance: RISPERIDONE
     Indication: PSYCHOTIC DISORDER
     Route: 065
  4. METFORMIN [Concomitant]
     Active Substance: METFORMIN HYDROCHLORIDE
     Indication: POLYCYSTIC OVARIES
     Route: 065

REACTIONS (4)
  - Condition aggravated [Recovered/Resolved]
  - Treatment noncompliance [Unknown]
  - Anovulatory cycle [Recovered/Resolved]
  - Psychotic disorder [Recovered/Resolved]
